FAERS Safety Report 10519041 (Version 3)
Quarter: 2015Q1

REPORT INFORMATION
  Report Type: Spontaneous
  Country: JP (occurrence: JP)
  Receive Date: 20141015
  Receipt Date: 20150326
  Transmission Date: 20150720
  Serious: Yes (Life-Threatening, Hospitalization)
  Sender: FDA-Public Use
  Company Number: JP-CUBIST PHARMACEUTICALS, INC.-2014CBST001405

PATIENT

DRUGS (30)
  1. CUBICIN [Suspect]
     Active Substance: DAPTOMYCIN
     Indication: STAPHYLOCOCCAL INFECTION
     Dosage: 6.36 MG/KG, QD
     Route: 041
     Dates: start: 20140704, end: 20140729
  2. CUBICIN [Suspect]
     Active Substance: DAPTOMYCIN
     Indication: SEPSIS
  3. ELASPOL [Concomitant]
     Active Substance: SIVELESTAT SODIUM
     Dosage: UNK UNK, UNK
     Route: 041
     Dates: start: 20140727
  4. CUBICIN [Suspect]
     Active Substance: DAPTOMYCIN
     Indication: POST PROCEDURAL INFECTION
  5. VANCOMYCIN HCL [Concomitant]
     Active Substance: VANCOMYCIN HYDROCHLORIDE
     Indication: STAPHYLOCOCCAL INFECTION
  6. CUBICIN [Suspect]
     Active Substance: DAPTOMYCIN
     Indication: ARTHRITIS
     Dosage: 350 MG, QD
     Route: 041
     Dates: start: 20140704, end: 20140729
  7. VANCOMYCIN HCL [Concomitant]
     Active Substance: VANCOMYCIN HYDROCHLORIDE
     Indication: ARTHRITIS
     Dosage: 0.5 UNK, BID
     Route: 065
     Dates: start: 20140625, end: 20140703
  8. UBRETID [Concomitant]
     Active Substance: DISTIGMINE BROMIDE
     Indication: BENIGN PROSTATIC HYPERPLASIA
     Dosage: 5 MG, QD
     Route: 048
     Dates: start: 20140514, end: 20140724
  9. OMEPRAL                            /00661202/ [Concomitant]
     Indication: PROPHYLAXIS AGAINST GASTROINTESTINAL ULCER
     Dosage: 20 MG, QD
     Route: 041
     Dates: start: 20140721, end: 20140723
  10. ZOSYN [Concomitant]
     Active Substance: PIPERACILLIN SODIUM\TAZOBACTAM SODIUM
     Indication: PRODUCT USED FOR UNKNOWN INDICATION
     Dosage: 4.5 MG, QD
     Route: 041
     Dates: start: 20140720, end: 20140720
  11. MEGEIDE [Concomitant]
     Indication: PRODUCT USED FOR UNKNOWN INDICATION
     Dosage: 50 MG, QD
     Route: 030
     Dates: start: 20140710, end: 20140710
  12. BROMHEXINE HYDROCHLORIDE [Concomitant]
     Active Substance: BROMHEXINE HYDROCHLORIDE
     Indication: PRODUCT USED FOR UNKNOWN INDICATION
     Dosage: 4 MG, QID
     Route: 042
     Dates: start: 20140721, end: 20140723
  13. CUBICIN [Suspect]
     Active Substance: DAPTOMYCIN
     Indication: OFF LABEL USE
  14. SOLDEM 3A [Concomitant]
     Active Substance: CARBOHYDRATES\POTASSIUM CHLORIDE\SODIUM CHLORIDE\SODIUM LACTATE
     Indication: PRODUCT USED FOR UNKNOWN INDICATION
     Dosage: 500 ML, BID
     Route: 041
     Dates: start: 20140721, end: 20140724
  15. MEGEIDE [Concomitant]
     Dosage: 50 MG, QD
     Route: 030
     Dates: start: 20140718, end: 20140718
  16. MUCOFILIN [Concomitant]
     Indication: ACUTE RESPIRATORY DISTRESS SYNDROME
     Dosage: UNK UNK, INH (INHALATION)
     Dates: start: 20140727
  17. ISOTONIC SODIUM CHLORIDE SOLUTION [Concomitant]
     Active Substance: SODIUM CHLORIDE
     Indication: PRODUCT USED FOR UNKNOWN INDICATION
     Dosage: 100 ML, QD
     Route: 041
     Dates: start: 20140705, end: 20140729
  18. AZILVA [Concomitant]
     Active Substance: AZILSARTAN KAMEDOXOMIL
     Indication: HYPERTENSION
     Dosage: 40 MG, QD
     Route: 048
     Dates: start: 20140514, end: 20140723
  19. TRICHLORMETHIAZIDE [Concomitant]
     Active Substance: TRICHLORMETHIAZIDE
     Indication: HYPERTENSION
     Dosage: 1 MG, QD
     Route: 048
     Dates: start: 20140514, end: 20140723
  20. ZOSYN [Concomitant]
     Active Substance: PIPERACILLIN SODIUM\TAZOBACTAM SODIUM
     Dosage: 4.5 MG, QID
     Route: 041
     Dates: start: 20140721, end: 20140730
  21. ELASPOL [Concomitant]
     Active Substance: SIVELESTAT SODIUM
     Indication: ACUTE RESPIRATORY DISTRESS SYNDROME
     Dosage: 250 MG, QD
     Route: 041
     Dates: start: 20140721, end: 20140725
  22. SOLDEM 3A [Concomitant]
     Active Substance: CARBOHYDRATES\POTASSIUM CHLORIDE\SODIUM CHLORIDE\SODIUM LACTATE
     Dosage: 500 ML, QD
     Route: 041
     Dates: start: 20140725, end: 20140727
  23. AMLODIPINE [Concomitant]
     Active Substance: AMLODIPINE BESYLATE
     Indication: HYPERTENSION
     Dosage: 5 MG, QD
     Route: 048
     Dates: start: 20140514, end: 20140723
  24. ANTEBATE [Concomitant]
     Active Substance: BETAMETHASONE DIPROPIONATE
     Indication: PRURITUS
     Dosage: UNK UNK, QD
     Route: 061
     Dates: start: 20140514
  25. NORSPAN                            /00444001/ [Concomitant]
     Indication: BACK PAIN
     Dosage: 20 MG, QW
     Route: 062
     Dates: start: 20140603
  26. MEGEIDE [Concomitant]
     Dosage: 50 MG, QD
     Route: 030
     Dates: start: 20140712, end: 20140712
  27. NEXIUM [Concomitant]
     Active Substance: ESOMEPRAZOLE MAGNESIUM
     Indication: GASTRIC ULCER
     Dosage: 20 MG, QD
     Route: 048
     Dates: start: 20140514, end: 20140723
  28. BETANIS [Concomitant]
     Active Substance: MIRABEGRON
     Indication: BENIGN PROSTATIC HYPERPLASIA
     Dosage: 50 MG, QD
     Route: 048
     Dates: start: 20140514, end: 20140723
  29. URSODEOXYCHOLIC ACID [Concomitant]
     Active Substance: URSODIOL
     Indication: CHOLECYSTITIS
     Dosage: 100 MG, TID
     Route: 048
     Dates: start: 20140620, end: 20140724
  30. SOLYUGEN F [Concomitant]
     Indication: PRODUCT USED FOR UNKNOWN INDICATION
     Dosage: 500 ML, QD
     Route: 041
     Dates: start: 20140720, end: 20140723

REACTIONS (10)
  - Off label use [Unknown]
  - Spinal compression fracture [None]
  - Disseminated intravascular coagulation [None]
  - Pneumonia [Recovering/Resolving]
  - Cholecystitis acute [None]
  - Post procedural infection [None]
  - Arthritis [None]
  - Gastric ulcer haemorrhage [None]
  - Sepsis [None]
  - Acute respiratory distress syndrome [None]

NARRATIVE: CASE EVENT DATE: 20140720
